FAERS Safety Report 4898486-1 (Version None)
Quarter: 2006Q1

REPORT INFORMATION
  Report Type: 
  Country: None (occurrence: None)
  Receive Date: 20060127
  Receipt Date: 20060111
  Transmission Date: 20060701
  Serious: Yes (Hospitalization, Other)
  Sender: FDA-Public Use
  Company Number: US_0408104540

PATIENT
  Age: 42 Year
  Sex: Female
  Weight: 96.5 kg

DRUGS (16)
  1. ZYPREXA [Suspect]
     Indication: BIPOLAR DISORDER
     Dosage: 15 MG, EACH EVENING, ORAL
     Route: 048
     Dates: start: 19970129, end: 20040310
  2. HUMULIN (HUMAN INSULIN (RDNA ORIGIN) 30% REGULAR, 70% NPH UNKNOWN FORM [Suspect]
     Indication: DIABETES MELLITUS NON-INSULIN-DEPENDENT
     Dosage: 110 U, DAILY (1/D), SUBCUTANEOUS; 32 U, 2/D SUBCUTANEOUS
     Route: 058
     Dates: start: 20001201
  3. HUMAJECT - HUMULIN 70/30 (HUMAJECT - HUMULIN 70/30) PEN, DISPOSABLE [Concomitant]
  4. LITHIUM CARBONATE [Concomitant]
  5. PRILOSEC [Concomitant]
  6. LEVOTHYROID (LEVOTHYOXINE SODIUM) [Concomitant]
  7. AVAPRO [Concomitant]
  8. IRON SUPPLEMENT (IRON SUPPLEMENT) [Concomitant]
  9. PAXIL (PAROXETINE HYDROCOHLORIDE) [Concomitant]
  10. LOTENSIN [Concomitant]
  11. LOTENSIN [Concomitant]
  12. DESOGESTREL W/ETHINYLESRADIOL (DESOGESTREL W/ETHINYLESTRADIOL) [Concomitant]
  13. BUSPAR [Concomitant]
  14. SARAFEM (FLUOXETINE) [Concomitant]
  15. EFFEXOR [Concomitant]
  16. MULTI-VITAMIN [Concomitant]

REACTIONS (59)
  - ANOXIC ENCEPHALOPATHY [None]
  - ASPIRATION [None]
  - ASTHENIA [None]
  - BALANCE DISORDER [None]
  - BLOOD CHOLESTEROL INCREASED [None]
  - BLOOD SODIUM INCREASED [None]
  - BLOOD TRIGLYCERIDES INCREASED [None]
  - BRONCHITIS [None]
  - CARDIAC VENTRICULAR DISORDER [None]
  - CHOLECYSTECTOMY [None]
  - CONSTIPATION [None]
  - DEHYDRATION [None]
  - DIABETES MELLITUS NON-INSULIN-DEPENDENT [None]
  - DIABETIC COMA [None]
  - DIABETIC KETOACIDOSIS [None]
  - DISSEMINATED INTRAVASCULAR COAGULATION [None]
  - DRY MOUTH [None]
  - ELECTROCARDIOGRAM ST SEGMENT DEPRESSION [None]
  - ELECTROENCEPHALOGRAM ABNORMAL [None]
  - HAEMOGLOBIN DECREASED [None]
  - HAEMORRHOIDS [None]
  - HYPERGLYCAEMIA [None]
  - HYPERTENSION [None]
  - HYPOGLYCAEMIA [None]
  - HYPOTENSION [None]
  - HYPOVOLAEMIA [None]
  - IMPAIRED GASTRIC EMPTYING [None]
  - INCREASED APPETITE [None]
  - LETHARGY [None]
  - LOSS OF CONSCIOUSNESS [None]
  - LOW DENSITY LIPOPROTEIN INCREASED [None]
  - MASS [None]
  - MENOMETRORRHAGIA [None]
  - MENOPAUSAL SYMPTOMS [None]
  - METABOLIC ACIDOSIS [None]
  - METABOLIC ENCEPHALOPATHY [None]
  - OCCULT BLOOD POSITIVE [None]
  - OEDEMA [None]
  - OTITIS MEDIA [None]
  - PANCREATIC CYST [None]
  - PANCREATITIS [None]
  - PERINEAL PAIN [None]
  - PHARYNGITIS [None]
  - POLLAKIURIA [None]
  - RENAL FAILURE ACUTE [None]
  - RESPIRATORY FAILURE [None]
  - RHABDOMYOLYSIS [None]
  - SEPSIS [None]
  - SHOCK [None]
  - SINOBRONCHITIS [None]
  - SINUS CONGESTION [None]
  - SINUS DISORDER [None]
  - SINUS TACHYCARDIA [None]
  - SINUSITIS [None]
  - TACHYPNOEA [None]
  - THIRST [None]
  - URINE KETONE BODY PRESENT [None]
  - WEIGHT DECREASED [None]
  - WEIGHT INCREASED [None]
